FAERS Safety Report 9132152 (Version 26)
Quarter: 2017Q1

REPORT INFORMATION
  Report Type: Spontaneous
  Country: DE (occurrence: DE)
  Receive Date: 20130301
  Receipt Date: 20170123
  Transmission Date: 20170429
  Serious: Yes (Hospitalization)
  Sender: FDA-Public Use
  Company Number: DE-FRI-1000043006

PATIENT
  Age: 47 Year
  Sex: Male

DRUGS (6)
  1. NEBIVOLOL. [Concomitant]
     Active Substance: NEBIVOLOL
     Route: 065
  2. ESCITALOPRAM OXALATE UNK [Suspect]
     Active Substance: ESCITALOPRAM OXALATE
     Dosage: 2.5 MG, QD
     Route: 048
     Dates: start: 201007
  3. ESCITALOPRAM OXALATE UNK [Suspect]
     Active Substance: ESCITALOPRAM OXALATE
     Indication: DEPRESSION
     Dosage: 10 MG, QD
     Route: 048
     Dates: end: 201207
  4. BISOPROLOL [Concomitant]
     Active Substance: BISOPROLOL
     Indication: PRODUCT USED FOR UNKNOWN INDICATION
  5. NEBIVOLOL. [Concomitant]
     Active Substance: NEBIVOLOL
     Indication: PRODUCT USED FOR UNKNOWN INDICATION
  6. BISOPROLOL [Concomitant]
     Active Substance: BISOPROLOL
     Route: 065

REACTIONS (25)
  - Atrial fibrillation [Not Recovered/Not Resolved]
  - Seborrhoeic dermatitis [Recovered/Resolved]
  - Glycosylated haemoglobin increased [Recovered/Resolved]
  - Dyslipidaemia [Recovered/Resolved]
  - Coronary artery disease [Unknown]
  - Disturbance in attention [Unknown]
  - Libido disorder [Unknown]
  - Diffuse alopecia [Not Recovered/Not Resolved]
  - Arrhythmia [Unknown]
  - Hormone level abnormal [Recovered/Resolved]
  - Lipoprotein (a) increased [Unknown]
  - Hyperhidrosis [Unknown]
  - Restlessness [Unknown]
  - Weight increased [Recovered/Resolved]
  - Diabetes mellitus [Recovered/Resolved]
  - Ventricular extrasystoles [Not Recovered/Not Resolved]
  - Blood testosterone decreased [Recovered/Resolved]
  - Migraine [Unknown]
  - Alopecia [Not Recovered/Not Resolved]
  - Supraventricular extrasystoles [Not Recovered/Not Resolved]
  - Depressed level of consciousness [Unknown]
  - Mood swings [Unknown]
  - Asthenia [Unknown]
  - Lipid metabolism disorder [Recovered/Resolved]
  - Obesity [Recovered/Resolved]

NARRATIVE: CASE EVENT DATE: 2012
